FAERS Safety Report 7237254-2 (Version None)
Quarter: 2011Q1

REPORT INFORMATION
  Report Type: 
  Country: None (occurrence: None)
  Receive Date: 20110121
  Receipt Date: 20110120
  Transmission Date: 20110831
  Serious: Yes (Other)
  Sender: FDA-Public Use
  Company Number: US-PFIZER INC-2010070738

PATIENT
  Sex: Female
  Weight: 67.12 kg

DRUGS (31)
  1. GEODON [Suspect]
     Dosage: 80 MG, UNK
  2. KLONOPIN [Suspect]
     Indication: ANXIETY
     Dosage: UNK
     Dates: start: 19840101
  3. GEODON [Suspect]
     Indication: MOOD SWINGS
     Dosage: 20 MG DAILY
     Route: 048
     Dates: start: 20050801
  4. GEODON [Suspect]
     Dosage: 80 MG, 3X/DAY
  5. EFFEXOR [Suspect]
     Dosage: 75 MG, DAILY
     Route: 048
     Dates: start: 19960101
  6. KLONOPIN [Suspect]
     Dosage: 1 MG, 3X/DAY, AS NEEDED
  7. LEXAPRO [Suspect]
     Indication: DEPRESSION
     Dosage: UNK
  8. ZOLOFT [Suspect]
     Indication: DEPRESSION
     Dosage: UNK
  9. EFFEXOR [Suspect]
     Dosage: 40 MG, 2X/DAY
     Dates: start: 20070809
  10. LITHIUM [Suspect]
     Indication: MOOD SWINGS
     Dosage: UNK
  11. KLONOPIN [Suspect]
     Dosage: 1 MG, 2X/DAY
  12. GEODON [Suspect]
     Dosage: 60 MG, UNK
  13. GEODON [Suspect]
     Dosage: 40 MG, UNK
  14. EFFEXOR [Suspect]
     Dosage: 75 MG, UNK
  15. EFFEXOR [Suspect]
     Dosage: 150 MG, IN THE MORNING
  16. PAXIL [Suspect]
     Indication: DEPRESSION
     Dosage: UNK
  17. GEODON [Suspect]
     Dosage: 40 MG, 2X/DAY
     Dates: start: 20070809
  18. GEODON [Suspect]
     Dosage: 60 MG, UNK
     Dates: start: 20071130
  19. KLONOPIN [Suspect]
     Dosage: 0.5 MG, 3X/DAY
  20. GEODON [Suspect]
     Dosage: 100 MG, UNK
  21. EFFEXOR [Suspect]
     Dosage: 75 MG, 2X/DAY
  22. KLONOPIN [Suspect]
     Dosage: 0.5 MG, 3X/DAY
     Dates: start: 20070809
  23. SEROQUEL [Suspect]
     Dosage: 50 MG, AT BEDTIME AS NEEDED
  24. SEROQUEL [Suspect]
     Dosage: 100 MG, AS NEEDED
  25. GEODON [Suspect]
     Dosage: 40 MG, 2X/DAY
  26. EFFEXOR [Suspect]
     Dosage: 37.5 MG, IN THE MORNING
  27. SEROQUEL [Suspect]
     Dosage: 100 MG AT BEDTIME
  28. SEROQUEL [Suspect]
     Dosage: 200 MG, AT NIGHT
  29. SEROQUEL [Suspect]
     Dosage: 300 MG, UNK
  30. SEROQUEL [Suspect]
     Dosage: 200 MG, AT 6 AND 9 AT NIGHT
  31. SEROQUEL [Suspect]
     Dosage: 200 MG, AT NIGHT
     Dates: start: 20070809

REACTIONS (6)
  - BLOOD PRESSURE FLUCTUATION [None]
  - ATTENTION DEFICIT/HYPERACTIVITY DISORDER [None]
  - BLOOD PRESSURE DECREASED [None]
  - MAJOR DEPRESSION [None]
  - PERSONALITY DISORDER [None]
  - BIPOLAR DISORDER [None]
